FAERS Safety Report 9803408 (Version 1)
Quarter: 2014Q1

REPORT INFORMATION
  Report Type: Spontaneous
  Country: US (occurrence: None)
  Receive Date: 20140107
  Receipt Date: 20140107
  Transmission Date: 20141002
  Serious: Yes (Other)
  Sender: FDA-Public Use
  Company Number: None

PATIENT
  Age: 60 Year
  Sex: Male

DRUGS (1)
  1. DULOXETINE [Suspect]
     Dosage: 2 CAPSULES, QD, ORAL
     Route: 048
     Dates: start: 20140105, end: 20140106

REACTIONS (3)
  - Depression [None]
  - Vision blurred [None]
  - Malaise [None]
